FAERS Safety Report 5243293-3 (Version None)
Quarter: 2007Q1

REPORT INFORMATION
  Report Type: 
  Country: None (occurrence: None)
  Receive Date: 20070215
  Receipt Date: 20070202
  Transmission Date: 20070707
  Serious: Yes (Death, Hospitalization)
  Sender: FDA-Public Use
  Company Number: 06CZ000852

PATIENT
  Age: 51 Year
  Sex: Male

DRUGS (4)
  1. LITHIUM CARBONATE [Suspect]
     Indication: DRUG USE FOR UNKNOWN INDICATION
     Dosage: 500 MG, UNKNOWN, UNK
  2. LEVOMEPROMAZINE (LEVOMEPROMAZINE) [Concomitant]
  3. AMITRIPTYLINE HCL [Concomitant]
  4. ZOLPIDEM TARTRATE [Concomitant]

REACTIONS (6)
  - DIABETIC NEUROPATHY [None]
  - MULTIPLE DRUG OVERDOSE INTENTIONAL [None]
  - RENAL FAILURE ACUTE [None]
  - SEPTIC SHOCK [None]
  - SOMNOLENCE [None]
  - SUICIDE ATTEMPT [None]
